FAERS Safety Report 7671838-2 (Version None)
Quarter: 2011Q3

REPORT INFORMATION
  Report Type: 
  Country: None (occurrence: None)
  Receive Date: 20110809
  Receipt Date: 20110729
  Transmission Date: 20111222
  Serious: Yes (Hospitalization)
  Sender: FDA-Public Use
  Company Number: JP-ROCHE-794781

PATIENT
  Sex: Female

DRUGS (29)
  1. TOCILIZUMAB [Suspect]
     Indication: RHEUMATOID ARTHRITIS
     Route: 041
     Dates: start: 20080614, end: 20080614
  2. TOCILIZUMAB [Suspect]
     Route: 041
     Dates: start: 20080806, end: 20080806
  3. INDOMETHACIN [Concomitant]
     Dosage: FORM: PERORAL AGENT
     Route: 048
  4. LAMISIL [Concomitant]
     Dosage: FORM: PERORAL AGENT
     Route: 048
  5. TOCILIZUMAB [Suspect]
     Route: 041
     Dates: start: 20081208, end: 20081208
  6. TOCILIZUMAB [Suspect]
     Route: 041
     Dates: start: 20090106, end: 20090106
  7. CIMETIDINE [Concomitant]
     Route: 048
  8. ELCATONIN [Concomitant]
     Route: 030
     Dates: start: 20080701, end: 20080829
  9. TOCILIZUMAB [Suspect]
     Route: 041
     Dates: start: 20090417, end: 20090417
  10. METHYLCOBALAMIN/PREGABALIN [Concomitant]
     Dosage: FORM: PERORAL AGENT
     Route: 048
  11. FOSAMAX [Concomitant]
     Dosage: FORM: PERORAL AGENT
     Route: 048
  12. TOCILIZUMAB [Suspect]
     Route: 041
     Dates: start: 20080712, end: 20080712
  13. TOCILIZUMAB [Suspect]
     Route: 041
     Dates: start: 20090213, end: 20090213
  14. MUCOSTA [Concomitant]
     Dosage: FORM: PERORAL AGENT
     Route: 048
  15. TOCILIZUMAB [Suspect]
     Dosage: DOSE: 248-280 MG
     Route: 041
     Dates: start: 20090515, end: 20100219
  16. MEXITIL [Concomitant]
     Dosage: FORM: PERORAL AGENT
     Route: 048
  17. DICLOFENAC SODIUM [Concomitant]
     Dosage: FORM: TAPE
     Route: 061
  18. TOCILIZUMAB [Suspect]
     Route: 041
     Dates: start: 20081001, end: 20081001
  19. PREDNISOLONE [Suspect]
     Route: 048
     Dates: start: 20080322, end: 20080613
  20. PREDNISOLONE [Suspect]
     Dosage: LESS THAN 5MG DURING THE DAY
     Route: 048
  21. PROMAC [Concomitant]
     Dosage: FORM: PERORAL AGENT
     Route: 048
  22. ERISPAN [Concomitant]
     Dosage: FORM: PERORAL AGENT
     Route: 048
  23. NICHISTATE [Concomitant]
     Dosage: FORM: PERORAL AGENT
     Route: 048
  24. ASPARA-CA [Concomitant]
     Dosage: FORM: PERORAL AGENT
     Route: 048
  25. TOCILIZUMAB [Suspect]
     Route: 041
     Dates: start: 20080903, end: 20080903
  26. TOCILIZUMAB [Suspect]
     Route: 041
     Dates: start: 20090325, end: 20090325
  27. TOCILIZUMAB [Suspect]
     Dosage: DOSE: 248-264 MG
     Route: 041
     Dates: start: 20100416
  28. PREDNISOLONE [Suspect]
     Indication: RHEUMATOID ARTHRITIS
     Dosage: FORM: PERORAL AGENT
     Route: 048
     Dates: end: 20080321
  29. PREDNISOLONE [Suspect]
     Route: 048
     Dates: start: 20080614

REACTIONS (2)
  - OSTEOPOROSIS [None]
  - SKIN ULCER [None]
